FAERS Safety Report 22396127 (Version 1)
Quarter: 2023Q2

REPORT INFORMATION
  Report Type: Spontaneous
  Country: US (occurrence: US)
  Receive Date: 20230601
  Receipt Date: 20230601
  Transmission Date: 20230721
  Serious: No
  Sender: FDA-Public Use
  Company Number: US-APIL-2315750US

PATIENT
  Sex: Female

DRUGS (2)
  1. BOTOX [Suspect]
     Active Substance: ONABOTULINUMTOXINA
     Indication: Torticollis
     Dosage: UNK, SINGLE
  2. BOTOX [Suspect]
     Active Substance: ONABOTULINUMTOXINA
     Indication: Dystonia

REACTIONS (6)
  - Arthralgia [Unknown]
  - Pain [Unknown]
  - Off label use [Unknown]
  - Musculoskeletal stiffness [Unknown]
  - Therapeutic response shortened [Unknown]
  - Drug ineffective for unapproved indication [Unknown]
